FAERS Safety Report 24224859 (Version 1)
Quarter: 2024Q3

REPORT INFORMATION
  Report Type: Spontaneous
  Country: IT (occurrence: IT)
  Receive Date: 20240819
  Receipt Date: 20240819
  Transmission Date: 20241017
  Serious: Yes (Other)
  Sender: BIOGEN
  Company Number: None

PATIENT
  Age: 39 Year
  Sex: Female
  Weight: 70 kg

DRUGS (1)
  1. TYSABRI [Suspect]
     Active Substance: NATALIZUMAB
     Indication: Multiple sclerosis
     Dosage: 300 MG MONTHLY; (LAST ?INFUSION CARRIED OUT ON 10 JULY 2024)
     Route: 050
     Dates: start: 20230115

REACTIONS (1)
  - Abortion missed [Not Recovered/Not Resolved]

NARRATIVE: CASE EVENT DATE: 20240801
